FAERS Safety Report 13348252 (Version 1)
Quarter: 2017Q1

REPORT INFORMATION
  Report Type: Spontaneous
  Country: FR (occurrence: FR)
  Receive Date: 20170319
  Receipt Date: 20170319
  Transmission Date: 20170428
  Serious: Yes (Other)
  Sender: FDA-Public Use
  Company Number: FR-BEH-2017078948

PATIENT
  Age: 15 Day
  Sex: Male
  Weight: 3.5 kg

DRUGS (2)
  1. PRIVIGEN [Suspect]
     Active Substance: HUMAN IMMUNOGLOBULIN G
     Indication: THROMBOCYTOPENIA
     Dosage: 1000 MG/KG, 1 IN 1 DAY; STARTED AT 3 ML/HR AND INCREASED EVERY 30 MIN. UNTIL A MAX. OF 8 ML/HR
     Route: 042
     Dates: start: 20170307, end: 20170307
  2. PRIVIGEN [Suspect]
     Active Substance: HUMAN IMMUNOGLOBULIN G
     Indication: CONGENITAL THROMBOCYTOPENIA
     Dosage: 1000 MG/KG, 1 IN 1 DAY; STARTED AT 3 ML/HR AND INCREASED EVERY 30 MIN. UNTIL A MAX. OF 8 ML/HR
     Route: 042
     Dates: start: 20170306, end: 20170306

REACTIONS (3)
  - Abnormal behaviour [Unknown]
  - Pyrexia [Not Recovered/Not Resolved]
  - Tremor [Not Recovered/Not Resolved]

NARRATIVE: CASE EVENT DATE: 20170307
